FAERS Safety Report 26107890 (Version 1)
Quarter: 2025Q4

REPORT INFORMATION
  Report Type: Spontaneous
  Country: US (occurrence: None)
  Receive Date: 20251129
  Receipt Date: 20251129
  Transmission Date: 20260119
  Serious: Yes (Other)
  Sender: FDA-CTU
  Company Number: None

PATIENT
  Sex: Female

DRUGS (7)
  1. TEZSPIRE [Suspect]
     Active Substance: TEZEPELUMAB-EKKO
     Indication: Asthma
     Route: 058
     Dates: start: 20250627
  2. ALBUTEROL AER HFA [Concomitant]
  3. BUMETANIDE TAB  1MG [Concomitant]
  4. LEXAORO TAB 5MG [Concomitant]
  5. NITROGLYCERN SUB 0.3MG [Concomitant]
  6. OXYBUTYNIN TAB 5MG ER [Concomitant]
  7. SYMBICORT AER 160-4.5 [Concomitant]

REACTIONS (5)
  - Dizziness [None]
  - Nausea [None]
  - Gait disturbance [None]
  - Impaired quality of life [None]
  - Fatigue [None]
